FAERS Safety Report 11359003 (Version 1)
Quarter: 2015Q3

REPORT INFORMATION
  Report Type: Spontaneous
  Country: US (occurrence: None)
  Receive Date: 20150807
  Receipt Date: 20150807
  Transmission Date: 20151125
  Serious: Yes (Disabling, Other)
  Sender: FDA-Public Use
  Company Number: None

PATIENT
  Age: 67 Year
  Sex: Female
  Weight: 84.37 kg

DRUGS (1)
  1. LEVOFLOXACIN. [Suspect]
     Active Substance: LEVOFLOXACIN
     Indication: RESPIRATORY TRACT INFECTION VIRAL
     Route: 048
     Dates: start: 20150630, end: 20150706

REACTIONS (12)
  - Hyperhidrosis [None]
  - Pain in extremity [None]
  - Gait disturbance [None]
  - Musculoskeletal pain [None]
  - Tendon pain [None]
  - Pain [None]
  - Heart rate increased [None]
  - Decreased activity [None]
  - Fatigue [None]
  - Paraesthesia [None]
  - Back pain [None]
  - Arthralgia [None]

NARRATIVE: CASE EVENT DATE: 20150701
